FAERS Safety Report 9044836 (Version 1)
Quarter: 2013Q1

REPORT INFORMATION
  Report Type: Report from Study
  Country: US (occurrence: US)
  Receive Date: 20130130
  Receipt Date: 20130130
  Transmission Date: 20140127
  Serious: No
  Sender: FDA-Public Use
  Company Number: US-ABBOTT-12P-163-0954602-00

PATIENT
  Age: 70 Year
  Sex: Female

DRUGS (10)
  1. HUMIRA 40 MG/0.8 ML PEN [Suspect]
     Indication: CROHN^S DISEASE
     Dates: start: 20111209
  2. XALATAN [Suspect]
     Indication: GLAUCOMA
  3. ZIOPTAN [Suspect]
     Indication: GLAUCOMA
  4. PERCOCET [Concomitant]
     Indication: PAIN
     Dosage: 5/325MG EVERY 6 HOURS
  5. AMBIEN [Concomitant]
     Indication: INSOMNIA
  6. CHILDRENS CHEWABLE VITAMINS [Concomitant]
     Indication: PRODUCT USED FOR UNKNOWN INDICATION
  7. CALCIUM [Concomitant]
     Indication: PRODUCT USED FOR UNKNOWN INDICATION
     Dosage: 3 CHEWABLES PER DAY
  8. VITELLE-DOT ESTROGEN PATCH [Concomitant]
     Indication: PRODUCT USED FOR UNKNOWN INDICATION
  9. VITAMIN B12 [Concomitant]
     Indication: PRODUCT USED FOR UNKNOWN INDICATION
  10. ZIOPTAN [Concomitant]
     Indication: GLAUCOMA

REACTIONS (15)
  - Increased tendency to bruise [Not Recovered/Not Resolved]
  - Drug hypersensitivity [Unknown]
  - Skin atrophy [Not Recovered/Not Resolved]
  - Injury [Unknown]
  - Skin wound [Unknown]
  - Wound haemorrhage [Unknown]
  - Laceration [Unknown]
  - Skin injury [Unknown]
  - Depression [Unknown]
  - Feeling abnormal [Unknown]
  - Crying [Unknown]
  - Confusional state [Unknown]
  - Thinking abnormal [Unknown]
  - Wound haemorrhage [Unknown]
  - Fatigue [Unknown]
